FAERS Safety Report 24894825 (Version 1)
Quarter: 2025Q1

REPORT INFORMATION
  Report Type: Other
  Country: US (occurrence: US)
  Receive Date: 20250128
  Receipt Date: 20250128
  Transmission Date: 20250408
  Serious: Yes (Other)
  Sender: KNIGHT THERAPEUTICS
  Company Number: US-Knight Therapeutics (USA) Inc.-2169912

PATIENT
  Age: 53 Year
  Sex: Male

DRUGS (3)
  1. IMPAVIDO [Suspect]
     Active Substance: MILTEFOSINE
     Indication: Acanthamoeba keratitis
  2. CHLORHEXIDINE GLUCONATE [Suspect]
     Active Substance: CHLORHEXIDINE GLUCONATE
  3. POLIHEXANIDE [Suspect]
     Active Substance: POLIHEXANIDE

REACTIONS (2)
  - Corneal transplant [Unknown]
  - Product use in unapproved indication [Unknown]

NARRATIVE: CASE EVENT DATE: 20230301
